FAERS Safety Report 9780288 (Version 2)
Quarter: 2014Q1

REPORT INFORMATION
  Report Type: Report from Study
  Country: GB (occurrence: GB)
  Receive Date: 20131223
  Receipt Date: 20140315
  Transmission Date: 20141002
  Serious: Yes (Other)
  Sender: FDA-Public Use
  Company Number: GB-ROCHE-1323725

PATIENT
  Age: 66 Year
  Sex: Female

DRUGS (3)
  1. RANIBIZUMAB [Suspect]
     Indication: AGE-RELATED MACULAR DEGENERATION
     Route: 050
     Dates: start: 20130607
  2. RANIBIZUMAB [Suspect]
     Route: 050
     Dates: start: 20131109
  3. LEVOTHYROXINE [Concomitant]
     Dosage: LAST DOSE BEFORE EVENT WAS RECEIVED ON 19 NOV 2013
     Route: 065

REACTIONS (3)
  - Haemorrhoids [Recovered/Resolved]
  - Muscle hypertrophy [Recovering/Resolving]
  - Muscle spasms [Recovering/Resolving]
